FAERS Safety Report 5290597-4 (Version None)
Quarter: 2007Q2

REPORT INFORMATION
  Report Type: 
  Country: None (occurrence: None)
  Receive Date: 20070405
  Receipt Date: 20070405
  Transmission Date: 20071010
  Serious: Yes (Life-Threatening)
  Sender: FDA-Public Use
  Company Number: None

PATIENT
  Sex: Female
  Weight: 69.4003 kg

DRUGS (1)
  1. ALBUTEROL [Suspect]

REACTIONS (2)
  - DEVICE INEFFECTIVE [None]
  - PHARMACEUTICAL PRODUCT COMPLAINT [None]
